FAERS Safety Report 8448213-6 (Version None)
Quarter: 2012Q2

REPORT INFORMATION
  Report Type: 
  Country: None (occurrence: None)
  Receive Date: 20120619
  Receipt Date: 20120608
  Transmission Date: 20120825
  Serious: Yes (Hospitalization)
  Sender: FDA-Public Use
  Company Number: US-ELI_LILLY_AND_COMPANY-US201206003324

PATIENT
  Age: 84 Year
  Sex: Female

DRUGS (5)
  1. TYLENOL PM [Concomitant]
     Dosage: UNK, BID
  2. PREDNISONE [Concomitant]
     Dosage: UNK
  3. VITAMIN D [Concomitant]
  4. FORTEO [Suspect]
     Indication: OSTEOPOROSIS
     Dosage: 20 U, QD
     Dates: start: 20120303
  5. COLACE [Concomitant]
     Dosage: UNK

REACTIONS (3)
  - ATRIAL FLUTTER [None]
  - PRURITUS [None]
  - HEADACHE [None]
